FAERS Safety Report 10204876 (Version 1)
Quarter: 2014Q2

REPORT INFORMATION
  Report Type: Spontaneous
  Country: US (occurrence: None)
  Receive Date: 20140527
  Receipt Date: 20140527
  Transmission Date: 20141212
  Serious: Yes (Disabling)
  Sender: FDA-Public Use
  Company Number: None

PATIENT
  Age: 66 Year
  Sex: Female

DRUGS (1)
  1. METRONIDAZOLE 500MG PLIVA [Suspect]
     Indication: DIVERTICULUM
     Dosage: 1 TABLET, THREE TIMES DAILY, TAKEN BY MOUTH
     Route: 048
     Dates: start: 20140513, end: 20140518

REACTIONS (6)
  - Muscle spasms [None]
  - Muscular weakness [None]
  - Nausea [None]
  - Diarrhoea [None]
  - Neck pain [None]
  - Musculoskeletal stiffness [None]
